FAERS Safety Report 4279313-2 (Version None)
Quarter: 2004Q1

REPORT INFORMATION
  Report Type: 
  Country: None (occurrence: None)
  Receive Date: 20040127
  Receipt Date: 20031103
  Transmission Date: 20041129
  Serious: Yes (Life-Threatening, Hospitalization, Disabling)
  Sender: FDA-Public Use
  Company Number: US-ROCHE-350823

PATIENT
  Age: 57 Year
  Sex: Female
  Weight: 80.7 kg

DRUGS (12)
  1. PEGASYS [Suspect]
     Indication: HEPATITIS C
     Dosage: ROUTE OF ADMINISTRATION REPORTED AS: INJECTION.
     Route: 050
     Dates: end: 20030915
  2. COPEGUS [Suspect]
     Indication: HEPATITIS C
     Route: 048
     Dates: end: 20030915
  3. VIOXX [Concomitant]
  4. EFFEXOR [Concomitant]
  5. ELAVIL [Concomitant]
  6. PROTONIX [Concomitant]
  7. NEURONTIN [Concomitant]
  8. TOPAMAX [Concomitant]
  9. NEXIUM [Concomitant]
  10. CELEXA [Concomitant]
  11. MAVIK [Concomitant]
  12. PERCOCET [Concomitant]

REACTIONS (5)
  - ALVEOLITIS ALLERGIC [None]
  - DEEP VEIN THROMBOSIS [None]
  - LIMB INJURY [None]
  - PNEUMONITIS [None]
  - PULMONARY EMBOLISM [None]
